FAERS Safety Report 25480938 (Version 1)
Quarter: 2025Q2

REPORT INFORMATION
  Report Type: Spontaneous
  Country: CN (occurrence: CN)
  Receive Date: 20250625
  Receipt Date: 20250625
  Transmission Date: 20250716
  Serious: Yes (Life-Threatening)
  Sender: BEIGENE
  Company Number: CN-BEIGENE-BGN-2025-010078

PATIENT
  Age: 39 Year
  Weight: 98 kg

DRUGS (16)
  1. TISLELIZUMAB [Suspect]
     Active Substance: TISLELIZUMAB
     Indication: Oesophageal adenocarcinoma
  2. TISLELIZUMAB [Suspect]
     Active Substance: TISLELIZUMAB
  3. TISLELIZUMAB [Suspect]
     Active Substance: TISLELIZUMAB
     Route: 041
  4. TISLELIZUMAB [Suspect]
     Active Substance: TISLELIZUMAB
     Route: 041
  5. TISLELIZUMAB [Suspect]
     Active Substance: TISLELIZUMAB
  6. TISLELIZUMAB [Suspect]
     Active Substance: TISLELIZUMAB
  7. TISLELIZUMAB [Suspect]
     Active Substance: TISLELIZUMAB
     Route: 041
  8. TISLELIZUMAB [Suspect]
     Active Substance: TISLELIZUMAB
     Route: 041
  9. CAPECITABINE [Concomitant]
     Active Substance: CAPECITABINE
     Indication: Oesophageal adenocarcinoma
  10. CAPECITABINE [Concomitant]
     Active Substance: CAPECITABINE
     Route: 048
  11. CAPECITABINE [Concomitant]
     Active Substance: CAPECITABINE
  12. CAPECITABINE [Concomitant]
     Active Substance: CAPECITABINE
     Route: 048
  13. ELOXATIN [Concomitant]
     Active Substance: OXALIPLATIN
     Indication: Oesophageal adenocarcinoma
  14. ELOXATIN [Concomitant]
     Active Substance: OXALIPLATIN
     Route: 041
  15. ELOXATIN [Concomitant]
     Active Substance: OXALIPLATIN
  16. ELOXATIN [Concomitant]
     Active Substance: OXALIPLATIN
     Route: 041

REACTIONS (2)
  - Myocardial injury [Recovered/Resolved]
  - Myocarditis [Recovered/Resolved]
